FAERS Safety Report 14298958 (Version 1)
Quarter: 2017Q4

REPORT INFORMATION
  Report Type: Spontaneous
  Country: US (occurrence: US)
  Receive Date: 20171216
  Receipt Date: 20171216
  Transmission Date: 20180321
  Serious: Yes (Life-Threatening, Other)
  Sender: FDA-Public Use
  Company Number: None

PATIENT
  Sex: Male
  Weight: 85.5 kg

DRUGS (5)
  1. FEXOFENADINE [Concomitant]
     Active Substance: FEXOFENADINE\FEXOFENADINE HYDROCHLORIDE
  2. SERTRALINE HCL 50 MG TAB NORT [Suspect]
     Active Substance: SERTRALINE HYDROCHLORIDE
     Indication: DEPRESSION
     Dosage: ?          QUANTITY:90 TABLET(S);?
     Route: 048
     Dates: start: 20171210, end: 20171213
  3. ALBUTEROL. [Concomitant]
     Active Substance: ALBUTEROL
  4. SERTRALINE [Concomitant]
     Active Substance: SERTRALINE HYDROCHLORIDE
  5. NOVOLOG VIA INSULIN PUMP [Concomitant]

REACTIONS (3)
  - Product quality issue [None]
  - Depression [None]
  - Somnolence [None]

NARRATIVE: CASE EVENT DATE: 20171212
